FAERS Safety Report 7640748-9 (Version None)
Quarter: 2011Q3

REPORT INFORMATION
  Report Type: 
  Country: None (occurrence: None)
  Receive Date: 20110728
  Receipt Date: 20110715
  Transmission Date: 20111222
  Serious: Yes (Hospitalization, Other)
  Sender: FDA-Public Use
  Company Number: US-ELI_LILLY_AND_COMPANY-US201009000472

PATIENT
  Sex: Female

DRUGS (5)
  1. FORTEO [Suspect]
     Indication: OSTEOPOROSIS
     Dosage: 20 UG, DAILY (1/D)
     Route: 058
  2. FORTEO [Suspect]
     Dosage: 20 UG, DAILY (1/D)
     Route: 058
  3. FORTEO [Suspect]
     Dosage: 20 UG, QD
     Route: 058
  4. FORTEO [Suspect]
     Dosage: 20 UG, QD
     Route: 058
  5. FORTEO [Suspect]
     Dosage: 20 UG, QD
     Route: 058

REACTIONS (11)
  - INJECTION SITE ERYTHEMA [None]
  - LABORATORY TEST ABNORMAL [None]
  - SOMNOLENCE [None]
  - BACK DISORDER [None]
  - KNEE ARTHROPLASTY [None]
  - VITAMIN D DECREASED [None]
  - MOBILITY DECREASED [None]
  - ARTHRITIS [None]
  - PYELONEPHRITIS [None]
  - RED BLOOD CELL COUNT DECREASED [None]
  - SCIATIC NERVE INJURY [None]
